FAERS Safety Report 7329604-3 (Version None)
Quarter: 2011Q1

REPORT INFORMATION
  Report Type: 
  Country: None (occurrence: None)
  Receive Date: 20110222
  Receipt Date: 20110216
  Transmission Date: 20110831
  Serious: Yes (Death, Other)
  Sender: FDA-Public Use
  Company Number: 2011SP007511

PATIENT
  Age: 57 Year
  Sex: Female

DRUGS (1)
  1. TEMODAL [Suspect]
     Indication: ANAPLASTIC ASTROCYTOMA
     Dosage: 120 MG; QD;

REACTIONS (5)
  - LEUKOPENIA [None]
  - THROMBOCYTOPENIA [None]
  - COGNITIVE DISORDER [None]
  - MOVEMENT DISORDER [None]
  - NERVOUS SYSTEM DISORDER [None]
